FAERS Safety Report 23354777 (Version 2)
Quarter: 2024Q1

REPORT INFORMATION
  Report Type: Spontaneous
  Country: JP (occurrence: None)
  Receive Date: 20240101
  Receipt Date: 20240110
  Transmission Date: 20240410
  Serious: Yes (Death)
  Sender: FDA-Public Use
  Company Number: 2023A296128

PATIENT
  Age: 90 Year
  Sex: Female

DRUGS (10)
  1. LOKELMA [Suspect]
     Active Substance: SODIUM ZIRCONIUM CYCLOSILICATE
     Indication: Hyperkalaemia
     Route: 048
  2. ROSUVASTATIN [Concomitant]
     Active Substance: ROSUVASTATIN
  3. JARDIANCE [Concomitant]
     Active Substance: EMPAGLIFLOZIN
  4. ENTRESTO [Concomitant]
     Active Substance: SACUBITRIL\VALSARTAN
  5. EDOXABAN TOSYLATE [Concomitant]
     Active Substance: EDOXABAN TOSYLATE
  6. AZOSEMIDE [Concomitant]
     Active Substance: AZOSEMIDE
  7. COLCHICINE [Concomitant]
     Active Substance: COLCHICINE
  8. MAGNESIUM OXIDE [Concomitant]
     Active Substance: MAGNESIUM OXIDE
  9. NIFEDIPINE [Concomitant]
     Active Substance: NIFEDIPINE
  10. TOLVAPTAN [Concomitant]
     Active Substance: TOLVAPTAN

REACTIONS (1)
  - COVID-19 [Fatal]
